FAERS Safety Report 9746457 (Version 1)
Quarter: 2013Q4

REPORT INFORMATION
  Report Type: Spontaneous
  Country: CL (occurrence: CL)
  Receive Date: 20131211
  Receipt Date: 20131211
  Transmission Date: 20140711
  Serious: Yes (Death, Other)
  Sender: FDA-Public Use
  Company Number: PHHY2013CL141858

PATIENT
  Age: 70 Year
  Sex: Male

DRUGS (4)
  1. CICLOSPORIN [Suspect]
     Indication: APLASIA PURE RED CELL
     Dosage: 100 MG, Q12H
  2. PREDNISONE [Suspect]
     Indication: APLASIA PURE RED CELL
     Dosage: 30 MG, PER DAY
  3. FOLIC ACID [Suspect]
     Indication: NORMOCHROMIC NORMOCYTIC ANAEMIA
  4. VITAMIN B12 [Suspect]
     Indication: NORMOCHROMIC NORMOCYTIC ANAEMIA

REACTIONS (4)
  - Respiratory tract infection [Fatal]
  - Pneumonia aspiration [Unknown]
  - Sepsis [Unknown]
  - Drug ineffective [Unknown]
